FAERS Safety Report 6417550-9 (Version None)
Quarter: 2009Q4

REPORT INFORMATION
  Report Type: 
  Country: None (occurrence: None)
  Receive Date: 20091028
  Receipt Date: 20091014
  Transmission Date: 20100525
  Serious: Yes (Death, Other)
  Sender: FDA-Public Use
  Company Number: IL-ROCHE-609484

PATIENT
  Age: 23 Year
  Sex: Male

DRUGS (7)
  1. CELLCEPT [Suspect]
     Indication: GRAFT VERSUS HOST DISEASE
     Route: 065
     Dates: start: 20081231
  2. CYCLOSPORINE [Suspect]
     Route: 065
     Dates: start: 20080101
  3. RAPAMUNE [Suspect]
     Route: 065
     Dates: start: 20080101
  4. STEROID NOS [Concomitant]
     Dosage: UNSPECIFIED STEROID REGMEN
  5. CHEMOTHERAPY DRUG NOS [Concomitant]
     Indication: ACUTE LYMPHOCYTIC LEUKAEMIA
     Dosage: DRUG NAME: ALL-IC-BFM 2003 PROTOCOL.
     Dates: start: 20040101, end: 20060901
  6. CHEMOTHERAPY DRUG NOS [Concomitant]
     Dosage: DRUG NAME: REZ-BFM 2002 PROTOCOL-ARM S2A.
     Dates: start: 20080201
  7. CHEMOTHERAPY DRUG NOS [Concomitant]
     Dosage: DRUG NAME: TBI-VP-16.
     Dates: start: 20081011

REACTIONS (21)
  - ASPERGILLOSIS [None]
  - BONE MARROW FAILURE [None]
  - BRAIN ABSCESS [None]
  - CARDIO-RESPIRATORY ARREST [None]
  - CEREBRAL INFARCTION [None]
  - CEREBRAL THROMBOSIS [None]
  - COMA [None]
  - CYTOMEGALOVIRUS CHORIORETINITIS [None]
  - HYPOGLYCAEMIA [None]
  - JC VIRUS INFECTION [None]
  - NEUTROPHIL COUNT DECREASED [None]
  - NO THERAPEUTIC RESPONSE [None]
  - PLATELET COUNT DECREASED [None]
  - PROGRESSIVE MULTIFOCAL LEUKOENCEPHALOPATHY [None]
  - PULMONARY CAVITATION [None]
  - RENAL DISORDER [None]
  - RENAL FAILURE [None]
  - RETINAL INFILTRATES [None]
  - SOMNOLENCE [None]
  - SPLENIC LESION [None]
  - STAPHYLOCOCCAL INFECTION [None]
